FAERS Safety Report 8786579 (Version 1)
Quarter: 2012Q4

REPORT INFORMATION
  Report Type: 
  Country: DE (occurrence: DE)
  Receive Date: 20120914
  Receipt Date: 20120914
  Transmission Date: 20130627
  Serious: Yes (Other)
  Sender: FDA-Public Use
  Company Number: DE-RANBAXY-2012RR-59734

PATIENT
  Sex: Female
  Weight: 2.45 kg

DRUGS (2)
  1. RAMIPRIL [Suspect]
     Dosage: UNK
     Route: 063
     Dates: start: 20120407, end: 20120428
  2. METOPROLOL [Concomitant]
     Dosage: UNK
     Route: 063
     Dates: start: 20120429, end: 20120618

REACTIONS (1)
  - Aphthous stomatitis [Recovered/Resolved]
